FAERS Safety Report 18296145 (Version 1)
Quarter: 2020Q3

REPORT INFORMATION
  Report Type: Report from Study
  Country: US (occurrence: US)
  Receive Date: 20200922
  Receipt Date: 20200922
  Transmission Date: 20201103
  Serious: Yes (Other)
  Sender: FDA-Public Use
  Company Number: US-MYLANLABS-2020M1080340

PATIENT
  Age: 43 Year
  Sex: Female

DRUGS (7)
  1. OCTREOTIDE. [Suspect]
     Active Substance: OCTREOTIDE
     Indication: INSULIN-LIKE GROWTH FACTOR INCREASED
  2. PEGVISOMANT [Suspect]
     Active Substance: PEGVISOMANT
     Indication: ACROMEGALY
     Dosage: 10 MILLIGRAM, QD
     Route: 058
  3. OCTREOTIDE. [Suspect]
     Active Substance: OCTREOTIDE
     Indication: ACROMEGALY
     Dosage: 30 MILLIGRAM, MONTHLY
     Route: 065
  4. METHYLDOPA. [Suspect]
     Active Substance: METHYLDOPA
     Indication: GESTATIONAL HYPERTENSION
     Dosage: UNK
     Route: 065
  5. CABERGOLINE. [Suspect]
     Active Substance: CABERGOLINE
     Indication: ACROMEGALY
     Dosage: UNK
     Route: 065
  6. CABERGOLINE. [Suspect]
     Active Substance: CABERGOLINE
     Indication: INSULIN-LIKE GROWTH FACTOR INCREASED
  7. PEGVISOMANT [Suspect]
     Active Substance: PEGVISOMANT
     Indication: INSULIN-LIKE GROWTH FACTOR INCREASED

REACTIONS (3)
  - Normal newborn [Recovered/Resolved]
  - Drug ineffective [Unknown]
  - Maternal exposure during pregnancy [Recovered/Resolved]
